FAERS Safety Report 18666034 (Version 1)
Quarter: 2020Q4

REPORT INFORMATION
  Report Type: Spontaneous
  Country: GB (occurrence: GB)
  Receive Date: 20201226
  Receipt Date: 20201226
  Transmission Date: 20210114
  Serious: Yes (Other)
  Sender: FDA-Public Use
  Company Number: GB-TEVA-2020-GB-1860815

PATIENT
  Age: 40 Year
  Sex: Male
  Weight: 87 kg

DRUGS (2)
  1. FINASTERIDE. [Suspect]
     Active Substance: FINASTERIDE
     Indication: ALOPECIA
     Dosage: 1MILLIGRAM
     Route: 048
     Dates: start: 20150101, end: 20200201
  2. TESTOSTERONE ENANTATE [Concomitant]
     Active Substance: TESTOSTERONE

REACTIONS (8)
  - Disturbance in attention [Unknown]
  - Loss of libido [Unknown]
  - Depression [Unknown]
  - Dizziness [Not Recovered/Not Resolved]
  - Panic attack [Unknown]
  - Dizziness [Unknown]
  - Vertigo [Unknown]
  - Anxiety [Unknown]

NARRATIVE: CASE EVENT DATE: 20200301
